FAERS Safety Report 24067067 (Version 1)
Quarter: 2024Q3

REPORT INFORMATION
  Report Type: Spontaneous
  Country: US (occurrence: US)
  Receive Date: 20240709
  Receipt Date: 20240709
  Transmission Date: 20241016
  Serious: No
  Sender: ROCHE
  Company Number: US-ROCHE-10000010551

PATIENT
  Age: 11 Year
  Sex: Male

DRUGS (2)
  1. ACTEMRA [Suspect]
     Active Substance: TOCILIZUMAB
     Indication: Product used for unknown indication
     Route: 065
  2. ILARIS [Concomitant]
     Active Substance: CANAKINUMAB

REACTIONS (2)
  - Arthralgia [Unknown]
  - Discomfort [Unknown]
